FAERS Safety Report 6432089-2 (Version None)
Quarter: 2009Q4

REPORT INFORMATION
  Report Type: 
  Country: None (occurrence: None)
  Receive Date: 20091109
  Receipt Date: 20091102
  Transmission Date: 20100525
  Serious: Yes (Other)
  Sender: FDA-Public Use
  Company Number: US-ROCHE-666407

PATIENT
  Sex: Female
  Weight: 63.5 kg

DRUGS (1)
  1. CAPECITABINE [Suspect]
     Indication: COLORECTAL CANCER
     Dosage: TAKEN 3 TABLETS IN MORNING AND 4 TABLETS IN EVENING
     Route: 048
     Dates: start: 20090211

REACTIONS (1)
  - MALIGNANT NEOPLASM PROGRESSION [None]
